FAERS Safety Report 20044936 (Version 4)
Quarter: 2025Q3

REPORT INFORMATION
  Report Type: Spontaneous
  Country: EU (occurrence: EU)
  Receive Date: 20211108
  Receipt Date: 20250812
  Transmission Date: 20251021
  Serious: Yes (Other)
  Sender: AMGEN
  Company Number: EU-002147023-NVSC2021PT242636

PATIENT
  Age: 67 Year
  Sex: Female

DRUGS (6)
  1. ADALIMUMAB [Suspect]
     Active Substance: ADALIMUMAB
     Indication: Psoriasis
     Dosage: 40 MILLIGRAM, Q2WK
     Route: 058
  2. ADALIMUMAB [Suspect]
     Active Substance: ADALIMUMAB
     Indication: Psoriatic arthropathy
     Route: 065
  3. SECUKINUMAB [Suspect]
     Active Substance: SECUKINUMAB
     Indication: Psoriasis
     Route: 058
  4. SECUKINUMAB [Suspect]
     Active Substance: SECUKINUMAB
     Indication: Psoriatic arthropathy
     Dosage: 300 MILLIGRAM, Q4WK
     Route: 058
     Dates: start: 20201125, end: 20201230
  5. SECUKINUMAB [Suspect]
     Active Substance: SECUKINUMAB
     Route: 058
  6. PREDNISOLONE [Concomitant]
     Active Substance: PREDNISOLONE
     Indication: Product used for unknown indication

REACTIONS (16)
  - Systemic lupus erythematosus [Unknown]
  - Pyoderma gangrenosum [Recovered/Resolved]
  - Skin ulcer [Recovered/Resolved]
  - Cell death [Unknown]
  - Skin lesion [Recovered/Resolved]
  - Pustule [Unknown]
  - Odynophagia [Unknown]
  - Aphthous ulcer [Unknown]
  - C-reactive protein increased [Unknown]
  - Red blood cell sedimentation rate increased [Unknown]
  - Double stranded DNA antibody positive [Unknown]
  - Pyrexia [Unknown]
  - Skin disorder [Unknown]
  - Arthralgia [Unknown]
  - Arthritis [Recovered/Resolved]
  - Psoriasis [Unknown]

NARRATIVE: CASE EVENT DATE: 20201230
